FAERS Safety Report 6663448-0 (Version None)
Quarter: 2010Q2

REPORT INFORMATION
  Report Type: 
  Country: None (occurrence: None)
  Receive Date: 20100401
  Receipt Date: 20100322
  Transmission Date: 20101027
  Serious: Yes (Other)
  Sender: FDA-Public Use
  Company Number: US-PFIZER INC-2010036746

PATIENT
  Sex: Female
  Weight: 77.098 kg

DRUGS (2)
  1. DEPO-MEDROL [Suspect]
     Dosage: ONCE EVERY 4 WEEKS
     Route: 030
     Dates: start: 20030101, end: 20080101
  2. LORTAB [Concomitant]
     Indication: PAIN IN EXTREMITY
     Dosage: [HYDROCODONE BITARTRATE 7.5 MG]/[ACETAMINOPHEN 500 MG]
     Route: 048

REACTIONS (2)
  - BREAST CANCER FEMALE [None]
  - UTERINE LEIOMYOMA [None]
